FAERS Safety Report 5050296-0 (Version None)
Quarter: 2006Q3

REPORT INFORMATION
  Report Type: 
  Country: None (occurrence: None)
  Receive Date: 20060713
  Receipt Date: 20060630
  Transmission Date: 20061208
  Serious: Yes (Hospitalization, Other)
  Sender: FDA-Public Use
  Company Number: US-AMGEN-US184905

PATIENT
  Sex: Female

DRUGS (17)
  1. EPOGEN [Suspect]
     Indication: DIALYSIS
     Route: 065
  2. AMIODARONE HCL [Concomitant]
  3. NEURONTIN [Concomitant]
  4. RENAGEL [Concomitant]
  5. NORVASC [Concomitant]
  6. AMITRIPTYLINE HCL [Concomitant]
  7. REGLAN [Concomitant]
  8. LISINOPRIL [Concomitant]
  9. DARVOCET [Concomitant]
  10. ZOCOR [Concomitant]
  11. NEPHROCAPS [Concomitant]
  12. DIOVAN [Concomitant]
  13. ZINC [Concomitant]
  14. QUININE SULFATE [Concomitant]
  15. PROTONIX [Concomitant]
  16. MEGACE [Concomitant]
  17. ASPIRIN [Concomitant]

REACTIONS (7)
  - ABDOMINAL PAIN [None]
  - ATRIAL FIBRILLATION [None]
  - BONE MARROW FAILURE [None]
  - HAEMOGLOBIN DECREASED [None]
  - HYPERKALAEMIA [None]
  - HYPERPLASIA [None]
  - NAUSEA [None]
